FAERS Safety Report 16778845 (Version 1)
Quarter: 2019Q3

REPORT INFORMATION
  Report Type: Spontaneous
  Country: GB (occurrence: GB)
  Receive Date: 20190906
  Receipt Date: 20190906
  Transmission Date: 20191005
  Serious: Yes (Death, Life-Threatening, Other)
  Sender: FDA-Public Use
  Company Number: GB-009507513-1907GBR002987

PATIENT
  Age: 71 Year
  Sex: Male
  Weight: 84 kg

DRUGS (11)
  1. PEMBROLIZUMAB. [Suspect]
     Active Substance: PEMBROLIZUMAB
     Indication: METASTASES TO BONE
  2. PEMETREXED DISODIUM [Suspect]
     Active Substance: PEMETREXED DISODIUM
     Indication: METASTASES TO BONE
  3. VORICONAZOLE. [Concomitant]
     Active Substance: VORICONAZOLE
     Route: 042
  4. ZINC (UNSPECIFIED) [Concomitant]
     Active Substance: ZINC
  5. CARBOPLATIN. [Suspect]
     Active Substance: CARBOPLATIN
     Indication: LUNG ADENOCARCINOMA
     Dosage: PEMETREXED (C1-7) +CARBOPLATIN (C1-4)
     Dates: end: 20190715
  6. PEMBROLIZUMAB. [Suspect]
     Active Substance: PEMBROLIZUMAB
     Indication: LUNG ADENOCARCINOMA
     Dosage: 200 MG, Q3/ Q 21 DAYS
     Route: 042
     Dates: start: 20190201, end: 20190625
  7. VALACYCLOVIR HYDROCHLORIDE. [Concomitant]
     Active Substance: VALACYCLOVIR HYDROCHLORIDE
     Indication: HERPES ZOSTER
     Dosage: 500 MILLIGRAM, BID
     Route: 048
     Dates: start: 20190603, end: 20190625
  8. ATORVASTATIN [Concomitant]
     Active Substance: ATORVASTATIN
  9. CETIRIZINE HYDROCHLORIDE. [Concomitant]
     Active Substance: CETIRIZINE HYDROCHLORIDE
  10. ASPIRIN. [Concomitant]
     Active Substance: ASPIRIN
     Dosage: 75 MILLIGRAM, ONCE A DAY (OD)
  11. LOSARTAN. [Concomitant]
     Active Substance: LOSARTAN

REACTIONS (2)
  - Hypersensitivity pneumonitis [Fatal]
  - Immune-mediated pneumonitis [Fatal]

NARRATIVE: CASE EVENT DATE: 2019
